FAERS Safety Report 9007279 (Version 2)
Quarter: 2013Q1

REPORT INFORMATION
  Report Type: Report from Study
  Country: US (occurrence: US)
  Receive Date: 20130110
  Receipt Date: 20130301
  Transmission Date: 20140127
  Serious: Yes (Hospitalization, Other)
  Sender: FDA-Public Use
  Company Number: US-ABBOTT-13P-163-1032777-00

PATIENT
  Age: 32 Year
  Sex: Female
  Weight: 43.9 kg

DRUGS (11)
  1. HUMIRA [Suspect]
     Indication: CROHN^S DISEASE
     Route: 058
     Dates: start: 2011, end: 201206
  2. HUMIRA [Suspect]
     Dosage: LOADING DOSE
     Dates: start: 20121229
  3. HUMIRA [Suspect]
     Route: 058
     Dates: start: 20130119
  4. UNSPECIFIED INGREDIENTS [Suspect]
     Indication: PAIN MANAGEMENT
  5. FENTANYL [Concomitant]
     Indication: PAIN
     Route: 062
  6. PROZAC [Concomitant]
     Indication: DEPRESSION
  7. MESALAMINE [Concomitant]
     Indication: CROHN^S DISEASE
  8. NICOTINE [Concomitant]
     Indication: EX-TOBACCO USER
     Route: 062
     Dates: start: 20121224
  9. ENSURE [Concomitant]
     Indication: MALNUTRITION
     Dosage: DAILY
  10. ASACOL [Concomitant]
     Indication: CROHN^S DISEASE
  11. NORCO [Concomitant]
     Indication: PAIN
     Dosage: 10/325MG

REACTIONS (10)
  - Malnutrition [Recovering/Resolving]
  - Crohn^s disease [Recovering/Resolving]
  - Dehydration [Not Recovered/Not Resolved]
  - Abdominal pain [Unknown]
  - Nausea [Unknown]
  - Vomiting [Unknown]
  - Weight decreased [Unknown]
  - Intestinal resection [Unknown]
  - Depression [Unknown]
  - Drug therapy [Unknown]
